FAERS Safety Report 6569811-0 (Version None)
Quarter: 2010Q1

REPORT INFORMATION
  Report Type: 
  Country: None (occurrence: None)
  Receive Date: 20100125
  Receipt Date: 20090929
  Transmission Date: 20100710
  Serious: Yes (Hospitalization)
  Sender: FDA-Public Use
  Company Number: 2009BI023735

PATIENT
  Age: 40 Year
  Sex: Female

DRUGS (3)
  1. TYSABRI [Suspect]
     Indication: CROHN'S DISEASE
     Dosage: IV
     Route: 042
     Dates: start: 20090501
  2. CON MEDS [Concomitant]
  3. PREV MEDS [Concomitant]

REACTIONS (1)
  - CROHN'S DISEASE [None]
